FAERS Safety Report 8986799 (Version 1)
Quarter: 2012Q4

REPORT INFORMATION
  Report Type: 
  Country: AR (occurrence: AR)
  Receive Date: 20121227
  Receipt Date: 20121227
  Transmission Date: 20130627
  Serious: Yes (Other)
  Sender: FDA-Public Use
  Company Number: AR-AMGEN-ARGSP2012082424

PATIENT
  Age: 55 Year
  Sex: Male

DRUGS (1)
  1. ENBREL [Suspect]
     Indication: PSORIASIS
     Dosage: 50 mg, weekly
     Dates: start: 20100820

REACTIONS (7)
  - Colitis [Unknown]
  - Blood pressure decreased [Unknown]
  - Panic attack [Unknown]
  - Stress [Unknown]
  - Feeling cold [Unknown]
  - Chills [Unknown]
  - Piloerection [Unknown]
